FAERS Safety Report 9350771 (Version 4)
Quarter: 2013Q3

REPORT INFORMATION
  Report Type: Spontaneous
  Country: US (occurrence: US)
  Receive Date: 20130617
  Receipt Date: 20130821
  Transmission Date: 20140515
  Serious: Yes (Other)
  Sender: FDA-Public Use
  Company Number: US-JNJFOC-20130604140

PATIENT
  Sex: Male
  Weight: 87.54 kg

DRUGS (15)
  1. XARELTO [Suspect]
     Indication: CEREBROVASCULAR ACCIDENT PROPHYLAXIS
     Route: 048
     Dates: start: 20130528, end: 2013
  2. XARELTO [Suspect]
     Indication: CEREBROVASCULAR ACCIDENT PROPHYLAXIS
     Route: 048
     Dates: start: 2012, end: 201304
  3. XARELTO [Suspect]
     Indication: ATRIAL FIBRILLATION
     Route: 048
     Dates: start: 2012, end: 201304
  4. XARELTO [Suspect]
     Indication: ATRIAL FIBRILLATION
     Route: 048
     Dates: start: 20130528, end: 2013
  5. APIXABAN [Suspect]
     Indication: ANTICOAGULANT THERAPY
     Route: 048
     Dates: start: 201304, end: 201305
  6. APIXABAN [Suspect]
     Indication: ANTICOAGULANT THERAPY
     Route: 048
     Dates: start: 2013
  7. APIXABAN [Suspect]
     Indication: ATRIAL FIBRILLATION
     Route: 048
     Dates: start: 2013
  8. APIXABAN [Suspect]
     Indication: ATRIAL FIBRILLATION
     Route: 048
     Dates: start: 201304, end: 201305
  9. BLOOD THINNERS [Suspect]
     Indication: ANTICOAGULANT THERAPY
     Route: 065
  10. TORSEMIDE [Concomitant]
     Indication: DIURETIC THERAPY
     Route: 048
  11. TORSEMIDE [Concomitant]
     Indication: DIURETIC THERAPY
     Route: 048
  12. BABY ASPIRIN [Concomitant]
     Indication: CARDIAC DISORDER
     Route: 048
  13. ALLOPURINOL [Concomitant]
     Indication: GOUT
     Route: 048
     Dates: start: 2011
  14. ATENOLOL [Concomitant]
     Indication: BLOOD PRESSURE
     Route: 048
  15. DIGOXIN [Concomitant]
     Indication: CARDIAC FAILURE
     Route: 048
     Dates: start: 2013

REACTIONS (8)
  - Dyspnoea [Not Recovered/Not Resolved]
  - Chest pain [Not Recovered/Not Resolved]
  - Epistaxis [Not Recovered/Not Resolved]
  - Haemoptysis [Not Recovered/Not Resolved]
  - Haemorrhage [Unknown]
  - Paraesthesia [Unknown]
  - Pruritus generalised [Not Recovered/Not Resolved]
  - Nasal polyps [Not Recovered/Not Resolved]
